FAERS Safety Report 19772611 (Version 2)
Quarter: 2021Q3

REPORT INFORMATION
  Report Type: Spontaneous
  Country: US (occurrence: US)
  Receive Date: 20210831
  Receipt Date: 20210831
  Transmission Date: 20211014
  Serious: No
  Sender: FDA-Public Use
  Company Number: US-SA-2021SA285276

PATIENT
  Age: 91 Year
  Sex: Male

DRUGS (1)
  1. DUPIXENT [Suspect]
     Active Substance: DUPILUMAB
     Indication: DERMATITIS ATOPIC
     Dosage: 300 MG, FREQUENCY?OTHER
     Route: 058
     Dates: start: 20210712, end: 20210823

REACTIONS (6)
  - Lacrimation increased [Unknown]
  - Dermatitis atopic [Unknown]
  - Insomnia [Unknown]
  - Chapped lips [Unknown]
  - Tenderness [Unknown]
  - Skin haemorrhage [Unknown]

NARRATIVE: CASE EVENT DATE: 202107
